FAERS Safety Report 7321137-3 (Version None)
Quarter: 2011Q1

REPORT INFORMATION
  Report Type: 
  Country: None (occurrence: None)
  Receive Date: 20110223
  Receipt Date: 20110223
  Transmission Date: 20110831
  Serious: No
  Sender: FDA-Public Use
  Company Number: None

PATIENT
  Sex: Male
  Weight: 74.3899 kg

DRUGS (2)
  1. TOPROL-XL [Suspect]
     Indication: CARDIAC FAILURE
     Dosage: 25 MG ONCE DAILY PO
     Route: 048
     Dates: start: 19981101, end: 20091001
  2. METOPROLOL SUCCINATE EXTENDED RELEASE [Suspect]
     Indication: CARDIAC FAILURE
     Dosage: 25 MG ONCE DAILY PO
     Route: 048
     Dates: start: 20091001, end: 20110201

REACTIONS (8)
  - PERIPHERAL COLDNESS [None]
  - DYSPNOEA [None]
  - COUGH [None]
  - GAIT DISTURBANCE [None]
  - INSOMNIA [None]
  - EXERCISE TOLERANCE DECREASED [None]
  - FATIGUE [None]
  - PRODUCT SUBSTITUTION ISSUE [None]
